FAERS Safety Report 4397970-7 (Version None)
Quarter: 2004Q3

REPORT INFORMATION
  Report Type: 
  Country: None (occurrence: None)
  Receive Date: 20040713
  Receipt Date: 20040630
  Transmission Date: 20050211
  Serious: Yes (Other)
  Sender: FDA-Public Use
  Company Number: ES-JNJFOC-20040700605

PATIENT
  Age: 2 Month
  Sex: Male

DRUGS (2)
  1. ACETAMINOPHEN [Suspect]
     Indication: DRUG USE FOR UNKNOWN INDICATION
     Dosage: 80 MG/KG/DOSE ON FIVE OCCASIONS OVER 26 HR
  2. DTP VACCINE (DIPHTHERIA AND TETANUS TOXOIDS AND PERTUSSIS) [Concomitant]

REACTIONS (3)
  - EXANTHEM [None]
  - MEDICATION ERROR [None]
  - OVERDOSE [None]
